FAERS Safety Report 9261285 (Version 2)
Quarter: 2013Q2

REPORT INFORMATION
  Report Type: Spontaneous
  Country: US (occurrence: US)
  Receive Date: 20130429
  Receipt Date: 20130510
  Transmission Date: 20140414
  Serious: Yes (Death)
  Sender: FDA-Public Use
  Company Number: US-GLAXOSMITHKLINE-A1021167A

PATIENT
  Age: 48 Year
  Sex: Female
  Weight: 100 kg

DRUGS (1)
  1. VOTRIENT [Suspect]
     Indication: SARCOMA METASTATIC
     Dosage: 800MG PER DAY
     Route: 048
     Dates: start: 20130123, end: 20130311

REACTIONS (2)
  - Sarcoma metastatic [Fatal]
  - Disease progression [Fatal]
